FAERS Safety Report 12729627 (Version 1)
Quarter: 2016Q3

REPORT INFORMATION
  Report Type: Report from Study
  Country: AU (occurrence: AU)
  Receive Date: 20160909
  Receipt Date: 20160909
  Transmission Date: 20161109
  Serious: Yes (Death, Other)
  Sender: FDA-Public Use
  Company Number: AU-ASTELLAS-2016US034962

PATIENT
  Age: 65 Year
  Sex: Male

DRUGS (2)
  1. ERLOTINIB [Suspect]
     Active Substance: ERLOTINIB
     Indication: NON-SMALL CELL LUNG CANCER METASTATIC
     Dosage: UNK UNK, UNKNOWN FREQ.
     Route: 065
  2. AFATINIB [Concomitant]
     Active Substance: AFATINIB
     Indication: NON-SMALL CELL LUNG CANCER METASTATIC
     Dosage: UNK UNK, UNKNOWN FREQ.
     Route: 065
     Dates: start: 200908

REACTIONS (7)
  - Malignant neoplasm progression [Fatal]
  - Dermatitis acneiform [Unknown]
  - Hair disorder [Unknown]
  - Paronychia [Unknown]
  - Trichorrhexis [Unknown]
  - Rash pustular [Unknown]
  - Folliculitis [Unknown]
